FAERS Safety Report 6993898-4 (Version None)
Quarter: 2010Q3

REPORT INFORMATION
  Report Type: 
  Country: None (occurrence: None)
  Receive Date: 20100917
  Receipt Date: 20100614
  Transmission Date: 20110219
  Serious: No
  Sender: FDA-Public Use
  Company Number: US-ASTRAZENECA-2010SE27714

PATIENT
  Age: 70 Year
  Sex: Female
  Weight: 99.8 kg

DRUGS (1)
  1. SEROQUEL XR [Suspect]
     Indication: INITIAL INSOMNIA
     Route: 048

REACTIONS (3)
  - CARDIAC FLUTTER [None]
  - HYPOAESTHESIA [None]
  - PARAESTHESIA [None]
